FAERS Safety Report 6183398-6 (Version None)
Quarter: 2009Q2

REPORT INFORMATION
  Report Type: 
  Country: None (occurrence: None)
  Receive Date: 20090506
  Receipt Date: 20090427
  Transmission Date: 20091009
  Serious: Yes (Hospitalization, Disabling, Other)
  Sender: FDA-Public Use
  Company Number: 193002USA

PATIENT
  Age: 51 Year
  Sex: Male

DRUGS (4)
  1. METHOTREXATE [Suspect]
     Indication: PSORIASIS
  2. METHOTREXATE [Suspect]
     Indication: PSORIATIC ARTHROPATHY
  3. ETANERCEPT [Suspect]
     Indication: PSORIASIS
  4. ETANERCEPT [Suspect]
     Indication: PSORIATIC ARTHROPATHY

REACTIONS (13)
  - CANDIDIASIS [None]
  - CULTURE TISSUE SPECIMEN POSITIVE [None]
  - DYSPHAGIA [None]
  - EXTRADURAL ABSCESS [None]
  - INTERVERTEBRAL DISCITIS [None]
  - MENTAL STATUS CHANGES [None]
  - OSTEOMYELITIS [None]
  - PULMONARY EMBOLISM [None]
  - QUADRIPLEGIA [None]
  - RESPIRATORY FAILURE [None]
  - SERRATIA INFECTION [None]
  - SPINAL CORD INFARCTION [None]
  - STAPHYLOCOCCAL INFECTION [None]
